FAERS Safety Report 22148862 (Version 1)
Quarter: 2023Q1

REPORT INFORMATION
  Report Type: Spontaneous
  Country: US (occurrence: US)
  Receive Date: 20230328
  Receipt Date: 20230328
  Transmission Date: 20230418
  Serious: No
  Sender: FDA-Public Use
  Company Number: US-CTI BIOPHARMA-2022US03297

PATIENT

DRUGS (36)
  1. VONJO [Suspect]
     Active Substance: PACRITINIB
     Indication: Myelofibrosis
     Dosage: 200 MG, BID
     Route: 048
     Dates: start: 20220401
  2. ALLOPURINOL [Concomitant]
     Active Substance: ALLOPURINOL
  3. AMOXICILLIN [Concomitant]
     Active Substance: AMOXICILLIN
  4. VITAMIN B COMPLEX NOS [Concomitant]
     Active Substance: CYANOCOBALAMIN\PYRIDOXINE HYDROCHLORIDE\RIBOFLAVIN\SODIUM PANTOTHENATE\THIAMINE HYDROCHLORIDE\VITAMI
  5. BEETROOT [Concomitant]
  6. CACAO MINAR [Concomitant]
  7. HAWTHORNE BERRY [Concomitant]
  8. CHERRY [Concomitant]
     Active Substance: CHERRY
  9. COLCHICINE [Concomitant]
     Active Substance: COLCHICINE
  10. COLLAGEN [Concomitant]
     Active Substance: COLLAGEN
  11. COPPER [Concomitant]
     Active Substance: COPPER
  12. COENZYM Q10 [Concomitant]
  13. CREATINE [Concomitant]
     Active Substance: CREATINE
     Dosage: UNK
  14. CALCIUM [Concomitant]
     Active Substance: CALCIUM
  15. LUTEIN + [Concomitant]
  16. VITAMIN E [Concomitant]
     Active Substance: .ALPHA.-TOCOPHEROL
  17. GLUTAMINE [ALANYL GLUTAMINE] [Concomitant]
  18. GOLDENSEAL ROOT [HYDRASTIS CANADENSIS] [Concomitant]
  19. GRAPESEED [Concomitant]
  20. VITAMIN D NOS [Concomitant]
     Active Substance: VITAMIN D NOS
  21. ZINC [Concomitant]
     Active Substance: ZINC
  22. LOPERAMIDE HYDROCHLORIDE [Concomitant]
     Active Substance: LOPERAMIDE HYDROCHLORIDE
  23. LOPERAMIDE [Concomitant]
     Active Substance: LOPERAMIDE
  24. HYDROCHLOROTHIAZIDE [Concomitant]
     Active Substance: HYDROCHLOROTHIAZIDE
  25. METHYLPREDNISOLONE [Concomitant]
     Active Substance: METHYLPREDNISOLONE
  26. OMEGA-3 FATTY ACIDS [Concomitant]
     Active Substance: OMEGA-3 FATTY ACIDS
  27. POTASSIUM CITRATE [Concomitant]
     Active Substance: POTASSIUM CITRATE
  28. PROBIOTICS NOS [Concomitant]
     Active Substance: PROBIOTICS NOS
  29. PROCHLORPERAZINE [Concomitant]
     Active Substance: PROCHLORPERAZINE
  30. PROTEIN [Concomitant]
     Active Substance: PROTEIN
  31. DIETARY SUPPLEMENT\RESVERATROL [Concomitant]
     Active Substance: DIETARY SUPPLEMENT\RESVERATROL
  32. REBLOZYL [LUSPATERCEPT AAMT] [Concomitant]
  33. TYLENOL [Concomitant]
     Active Substance: ACETAMINOPHEN
  34. UBIQUINOL [Concomitant]
     Active Substance: UBIQUINOL
  35. VITAMIN C [Concomitant]
     Active Substance: ASCORBIC ACID
  36. DEXTRIN\WHEAT [Concomitant]
     Active Substance: ICODEXTRIN\WHEAT

REACTIONS (3)
  - Rash macular [Not Recovered/Not Resolved]
  - Diarrhoea [Unknown]
  - Rash pruritic [Not Recovered/Not Resolved]
